FAERS Safety Report 4970853-7 (Version None)
Quarter: 2006Q2

REPORT INFORMATION
  Report Type: 
  Country: None (occurrence: None)
  Receive Date: 20060406
  Receipt Date: 20060320
  Transmission Date: 20061013
  Serious: Yes (Other)
  Sender: FDA-Public Use
  Company Number: IE200603004217

PATIENT
  Age: 88 Year
  Sex: Female
  Weight: 56.8 kg

DRUGS (5)
  1. FORTEO [Suspect]
     Indication: OSTEOPOROTIC FRACTURE
     Dosage: 20 UG, SUBCUTANEOUS
     Route: 058
     Dates: start: 20050823, end: 20060310
  2. FORTEO PEN (FORTEO PEN) PEN, DISPOSABLE [Concomitant]
  3. CALCICHEW-D3 (CALCIUM CARBONATE, COLECALCIFEROL) [Concomitant]
  4. ATORVASTATIN CALCIUM [Concomitant]
  5. STRONTIUM (89 SR) CHLORIDE (STRONTIUM (89 SR) CHLORIDE) [Concomitant]

REACTIONS (2)
  - DIZZINESS [None]
  - LETHARGY [None]
